FAERS Safety Report 19350217 (Version 2)
Quarter: 2021Q2

REPORT INFORMATION
  Report Type: Spontaneous
  Country: US (occurrence: US)
  Receive Date: 20210531
  Receipt Date: 20210610
  Transmission Date: 20210717
  Serious: No
  Sender: FDA-Public Use
  Company Number: US-GLAXOSMITHKLINE-US2021108927

PATIENT
  Sex: Female

DRUGS (1)
  1. ZEJULA [Suspect]
     Active Substance: NIRAPARIB
     Indication: FALLOPIAN TUBE CANCER
     Dosage: 200 MG, QD
     Route: 048
     Dates: start: 20210427

REACTIONS (9)
  - Balance disorder [Unknown]
  - Ill-defined disorder [Unknown]
  - Blood potassium decreased [Unknown]
  - Anxiety [Unknown]
  - Gait disturbance [Unknown]
  - Joint swelling [Unknown]
  - Hypokinesia [Unknown]
  - Feeling abnormal [Unknown]
  - Platelet count decreased [Unknown]
